FAERS Safety Report 11867771 (Version 1)
Quarter: 2015Q4

REPORT INFORMATION
  Report Type: Report from Study
  Country: DK (occurrence: DK)
  Receive Date: 20151224
  Receipt Date: 20151224
  Transmission Date: 20160305
  Serious: Yes (Other)
  Sender: FDA-Public Use
  Company Number: DK-AMGEN-DNKNI2015136254

PATIENT

DRUGS (6)
  1. CALCIUM [Concomitant]
     Active Substance: CALCIUM
  2. ANDROCUR [Concomitant]
     Active Substance: CYPROTERONE ACETATE
     Dosage: 1 DF, QD
  3. DENOSUMAB [Suspect]
     Active Substance: DENOSUMAB
     Indication: PRODUCT USED FOR UNKNOWN INDICATION
     Route: 065
  4. PAMORELIN [Concomitant]
     Active Substance: TRIPTORELIN PAMOATE
     Dosage: UNK UNK, Q6MO
  5. XGEVA [Suspect]
     Active Substance: DENOSUMAB
     Indication: PROSTATE CANCER METASTATIC
     Dosage: UNK UNK, Q4WK
     Route: 065
     Dates: start: 20141014, end: 20150622
  6. ENAPRIL [Concomitant]
     Active Substance: ENALAPRIL
     Dosage: 10 MG, QD

REACTIONS (1)
  - Osteonecrosis of jaw [Not Recovered/Not Resolved]

NARRATIVE: CASE EVENT DATE: 20150702
